FAERS Safety Report 14843557 (Version 3)
Quarter: 2018Q2

REPORT INFORMATION
  Report Type: Report from Study
  Country: None (occurrence: FI)
  Receive Date: 20180503
  Receipt Date: 20180524
  Transmission Date: 20180711
  Serious: Yes (Hospitalization)
  Sender: FDA-Public Use
  Company Number: FI-ABBVIE-18P-055-2335097-00

PATIENT
  Age: 70 Year
  Sex: Female
  Weight: 52.1 kg

DRUGS (23)
  1. DUODOPA [Suspect]
     Active Substance: CARBIDOPA\LEVODOPA
     Dosage: TITRATION VISIT 2 : MD 10 ML, CD 4.6 ML/H, ED 2 ML
     Route: 050
     Dates: start: 20180308, end: 20180308
  2. DUODOPA [Suspect]
     Active Substance: CARBIDOPA\LEVODOPA
     Dosage: TITRATION VISIT 5 : MD 9 ML, CD 4.7 ML/H, ED 2 ML
     Route: 050
     Dates: start: 20180311, end: 20180311
  3. SYMBICORT TURBOHALER FORTE [Concomitant]
     Indication: ASTHMA
     Route: 055
     Dates: start: 2010
  4. MIRTAZAPIN [Concomitant]
     Active Substance: MIRTAZAPINE
     Indication: DEPRESSION
     Route: 048
     Dates: start: 20180309
  5. CALCICHEW D3 EXTRA [Concomitant]
     Indication: VITAMIN SUPPLEMENTATION
     Dosage: 500MG / 20MIKROG
     Route: 048
     Dates: start: 20121109
  6. AMLODIPIN [Concomitant]
     Active Substance: AMLODIPINE BESYLATE
     Indication: HYPERTENSION
     Route: 048
     Dates: start: 20180422, end: 20180424
  7. DUODOPA [Suspect]
     Active Substance: CARBIDOPA\LEVODOPA
     Dosage: TITRATION VISIT 3 : MD 9 ML, CD 4.6 ML/H, ED 2 ML
     Route: 050
     Dates: start: 20180309, end: 20180309
  8. DUODOPA [Suspect]
     Active Substance: CARBIDOPA\LEVODOPA
     Dosage: DOSE NOT REPORTED
     Route: 050
     Dates: start: 20180313, end: 20180315
  9. SOMAC [Concomitant]
     Active Substance: PANTOPRAZOLE SODIUM
     Indication: GASTROINTESTINAL DISORDER
     Route: 048
     Dates: start: 20160313
  10. EMGESAN [Concomitant]
     Indication: BLOOD MAGNESIUM
     Route: 048
     Dates: start: 20160313
  11. ELIQUIS [Concomitant]
     Active Substance: APIXABAN
     Indication: ANTICOAGULANT THERAPY
     Route: 048
     Dates: start: 20170821
  12. SINEMET DEPOT [Concomitant]
     Active Substance: CARBIDOPA\LEVODOPA
     Indication: PARKINSON^S DISEASE
     Route: 048
     Dates: start: 20131021
  13. TRIMOPAN [Concomitant]
     Indication: URETHRITIS
     Route: 048
     Dates: start: 20180420, end: 20180424
  14. DUODOPA [Suspect]
     Active Substance: CARBIDOPA\LEVODOPA
     Indication: PARKINSON^S DISEASE
     Dosage: V4 PEG-J PLACEMENT D1 : MD 10 ML, CD 4.0 ML/H, ED 1 ML
     Route: 050
     Dates: start: 20180306, end: 20180306
  15. DUODOPA [Suspect]
     Active Substance: CARBIDOPA\LEVODOPA
     Dosage: TITRATION VISIT 1 : MD 10 ML, CD 4.4 ML/H, ED 1 ML
     Route: 050
     Dates: start: 20180307, end: 20180307
  16. DUODOPA [Suspect]
     Active Substance: CARBIDOPA\LEVODOPA
     Dosage: TITRATION VISIT 4 : MD 9 ML, CD 4.6 ML/H, ED 2 ML
     Route: 050
     Dates: start: 20180310, end: 20180310
  17. DUODOPA [Suspect]
     Active Substance: CARBIDOPA\LEVODOPA
     Dosage: TITRATION VISIT 6 : MD 9 ML, CD 4.7 ML/H, ED 2 ML
     Route: 050
     Dates: start: 20180312, end: 20180312
  18. MIRTAZAPIN [Concomitant]
     Active Substance: MIRTAZAPINE
     Indication: THERAPY CESSATION
  19. PAMOL [Concomitant]
     Active Substance: ACETAMINOPHEN
     Indication: ANALGESIC THERAPY
     Route: 048
     Dates: start: 20170316
  20. DUODOPA [Suspect]
     Active Substance: CARBIDOPA\LEVODOPA
     Dosage: MD 12 ML, CD 4.7 ML/H, ED 2 ML
     Route: 050
     Dates: start: 20180316
  21. OXIKLORIN [Concomitant]
     Active Substance: HYDROXYCHLOROQUINE SULFATE
     Indication: RHEUMATIC DISORDER
     Route: 048
     Dates: start: 20170215
  22. MADOPAR QUICK [Concomitant]
     Indication: PARKINSON^S DISEASE
     Route: 048
     Dates: start: 20150604
  23. SINEMET [Concomitant]
     Active Substance: CARBIDOPA\LEVODOPA
     Indication: PARKINSON^S DISEASE
     Route: 048
     Dates: start: 20180307

REACTIONS (1)
  - Syncope [Recovered/Resolved]

NARRATIVE: CASE EVENT DATE: 20180424
